FAERS Safety Report 5142264-5 (Version None)
Quarter: 2006Q4

REPORT INFORMATION
  Report Type: 
  Country: None (occurrence: None)
  Receive Date: 20061102
  Receipt Date: 20061023
  Transmission Date: 20070319
  Serious: Yes (Other)
  Sender: FDA-Public Use
  Company Number: PHBS2006GR16461

PATIENT
  Age: 70 Year
  Sex: Female

DRUGS (1)
  1. MIOCHOL-E [Suspect]
     Indication: WOUND CLOSURE

REACTIONS (3)
  - EYE DISCHARGE [None]
  - FIBROSIS [None]
  - HYPERSENSITIVITY [None]
